FAERS Safety Report 23084887 (Version 1)
Quarter: 2023Q4

REPORT INFORMATION
  Report Type: Spontaneous
  Country: JP (occurrence: JP)
  Receive Date: 20231019
  Receipt Date: 20231019
  Transmission Date: 20240110
  Serious: Yes (Other)
  Sender: FDA-Public Use
  Company Number: JP-SUN PHARMACEUTICAL INDUSTRIES LTD-2023RR-413149

PATIENT
  Age: 40 Year
  Sex: Male

DRUGS (6)
  1. QUETIAPINE [Suspect]
     Active Substance: QUETIAPINE
     Indication: Tonic convulsion
     Dosage: 200 MILLIGRAM, DAILY
     Route: 065
  2. DIAZEPAM [Suspect]
     Active Substance: DIAZEPAM
     Indication: Tonic convulsion
     Dosage: 20 MILLIGRAM, UNK
     Route: 065
  3. MIDAZOLAM [Suspect]
     Active Substance: MIDAZOLAM
     Indication: Tonic convulsion
     Dosage: 10 MILLIGRAM, UNK
     Route: 042
  4. PALIPERIDONE [Concomitant]
     Active Substance: PALIPERIDONE
     Indication: Tonic convulsion
     Dosage: 6 MILLIGRAM, DAILY
  5. ESCITALOPRAM [Concomitant]
     Active Substance: ESCITALOPRAM OXALATE
     Indication: Tonic convulsion
     Dosage: 10 MILLIGRAM, DAILY
     Route: 065
  6. BROMAZEPAM [Concomitant]
     Active Substance: BROMAZEPAM
     Indication: Tonic convulsion
     Dosage: 5 MILLIGRAM, AS NEEDED
     Route: 065

REACTIONS (5)
  - Drug ineffective [Unknown]
  - Myoclonus [Unknown]
  - Status epilepticus [Unknown]
  - Seizure [Unknown]
  - Poisoning [Unknown]
